FAERS Safety Report 5881638-1 (Version None)
Quarter: 2008Q3

REPORT INFORMATION
  Report Type: 
  Country: None (occurrence: None)
  Receive Date: 20080912
  Receipt Date: 20080707
  Transmission Date: 20090109
  Serious: No
  Sender: FDA-Public Use
  Company Number: US-ABBOTT-08P-163-0461345-00

PATIENT
  Sex: Female
  Weight: 61.29 kg

DRUGS (3)
  1. HUMIRA [Suspect]
     Indication: CROHN'S DISEASE
     Route: 058
     Dates: start: 20080420
  2. INTERCORT [Concomitant]
     Indication: CROHN'S DISEASE
     Route: 048
  3. GI RELAXER (FORGOT NAME) [Concomitant]
     Indication: CROHN'S DISEASE

REACTIONS (1)
  - ACCIDENTAL EXPOSURE [None]
